FAERS Safety Report 8462938-8 (Version None)
Quarter: 2012Q2

REPORT INFORMATION
  Report Type: 
  Country: None (occurrence: None)
  Receive Date: 20120625
  Receipt Date: 20120612
  Transmission Date: 20120825
  Serious: No
  Sender: FDA-Public Use
  Company Number: US-ASTRAZENECA-2010SE56720

PATIENT
  Age: 58 Year
  Sex: Female
  Weight: 113.4 kg

DRUGS (5)
  1. SEROQUEL XR [Suspect]
     Indication: BIPOLAR DISORDER
     Route: 048
     Dates: start: 20100101
  2. SEROQUEL XR [Suspect]
     Route: 048
  3. SEROQUEL XR [Suspect]
     Route: 048
  4. CYMBALTA [Concomitant]
  5. SEROQUEL XR [Suspect]
     Indication: POST-TRAUMATIC STRESS DISORDER
     Route: 048
     Dates: start: 20100101

REACTIONS (12)
  - DYSPEPSIA [None]
  - MIGRAINE [None]
  - WEIGHT INCREASED [None]
  - DRUG DOSE OMISSION [None]
  - WITHDRAWAL SYNDROME [None]
  - NAUSEA [None]
  - MALAISE [None]
  - MEMORY IMPAIRMENT [None]
  - STRESS [None]
  - TREMOR [None]
  - SELF INJURIOUS BEHAVIOUR [None]
  - INSOMNIA [None]
